FAERS Safety Report 5102742-1 (Version None)
Quarter: 2006Q3

REPORT INFORMATION
  Report Type: 
  Country: None (occurrence: None)
  Receive Date: 20060907
  Receipt Date: 20060822
  Transmission Date: 20061208
  Serious: Yes (Hospitalization)
  Sender: FDA-Public Use
  Company Number: DE200608003143

PATIENT
  Age: 76 Year
  Sex: Female
  Weight: 54.9 kg

DRUGS (11)
  1. GEMZAR [Suspect]
     Indication: PANCREATIC CARCINOMA
     Dosage: 1999 MG/M2, DAILY (1/D); INTRAVENOUS
     Route: 042
     Dates: start: 20030301, end: 20060717
  2. KEVATRIL (GRANISETRON HYDROCHLORIDE) [Concomitant]
  3. NEXIUM [Concomitant]
  4. HCT (HYDROCHLOROTHIAZIDE) [Concomitant]
  5. FUROSEMIDE [Concomitant]
  6. VALORON (TILIDINE HYDROCHLORIDE) [Concomitant]
  7. NOVALGIN (METAMIZOLE SODIUM MONOHYDRATE) [Concomitant]
  8. PASPERTIN /GFR/ (METOCLOPRAMIDE HYDROCHLORIDE) [Concomitant]
  9. EMBOLEX [Concomitant]
  10. FLUNINOC (FLUNITRAZEPAM) [Concomitant]
  11. TRANSTEC TTS (BUPRENORPHINE) [Concomitant]

REACTIONS (6)
  - BLOOD CREATININE INCREASED [None]
  - CAPILLARY LEAK SYNDROME [None]
  - HYPOKALAEMIA [None]
  - HYPOPROTEINAEMIA [None]
  - PLEURAL EFFUSION [None]
  - THROMBOCYTOPENIA [None]
